FAERS Safety Report 25690458 (Version 1)
Quarter: 2025Q3

REPORT INFORMATION
  Report Type: Spontaneous
  Country: US (occurrence: None)
  Receive Date: 20250815
  Receipt Date: 20250815
  Transmission Date: 20251020
  Serious: No
  Sender: FDA-CTU
  Company Number: None

PATIENT
  Age: 33 Year
  Sex: Male
  Weight: 85.5 kg

DRUGS (1)
  1. BIOTIN\FINASTERIDE\KETOCONAZOLE\MINOXIDIL [Suspect]
     Active Substance: BIOTIN\FINASTERIDE\KETOCONAZOLE\MINOXIDIL
     Indication: Alopecia
     Dates: start: 20250701, end: 20250815

REACTIONS (1)
  - Depression [None]

NARRATIVE: CASE EVENT DATE: 20250701
